FAERS Safety Report 15819231 (Version 1)
Quarter: 2019Q1

REPORT INFORMATION
  Report Type: Spontaneous
  Country: US (occurrence: US)
  Receive Date: 20190114
  Receipt Date: 20190114
  Transmission Date: 20190417
  Serious: No
  Sender: FDA-Public Use
  Company Number: US-ROCHE-2188829

PATIENT
  Sex: Male

DRUGS (1)
  1. NUTROPIN AQ [Suspect]
     Active Substance: SOMATROPIN
     Indication: SMALL FOR DATES BABY
     Dosage: PRESENT?NUSPIN 10 INJECTION
     Route: 065
     Dates: start: 201808

REACTIONS (4)
  - Intentional product use issue [Unknown]
  - Fatigue [Recovered/Resolved]
  - Ill-defined disorder [Recovered/Resolved]
  - Off label use [Unknown]
